FAERS Safety Report 7824678-5 (Version None)
Quarter: 2011Q4

REPORT INFORMATION
  Report Type: 
  Country: None (occurrence: None)
  Receive Date: 20111019
  Receipt Date: 20111006
  Transmission Date: 20120403
  Serious: Yes (Hospitalization)
  Sender: FDA-Public Use
  Company Number: PHHO2011US16148

PATIENT
  Sex: Male
  Weight: 86.5 kg

DRUGS (21)
  1. LOPRESSOR [Concomitant]
  2. PRILOSEC [Concomitant]
  3. CERTICAN [Suspect]
     Dosage: 3.75 MG, BID
     Route: 048
     Dates: start: 20111003
  4. PREDNISONE [Concomitant]
     Indication: RENAL TRANSPLANT
     Dosage: UNK
     Dates: start: 20110714
  5. LASIX [Concomitant]
  6. SIMVASTATIN [Concomitant]
  7. FERROUS SULFATE TAB [Concomitant]
  8. CERTICAN [Suspect]
     Indication: RENAL TRANSPLANT
     Dosage: 3.75 MG, BID
     Route: 048
     Dates: start: 20110709, end: 20110916
  9. ADALAT [Concomitant]
  10. ASPIRIN [Concomitant]
  11. LANTUS [Concomitant]
  12. IMODIUM [Concomitant]
  13. NYSTATIN [Concomitant]
  14. ARANESP [Concomitant]
  15. RENVELA [Concomitant]
  16. VALCYTE [Concomitant]
  17. SODIUM BICARBONATE [Concomitant]
  18. LABETALOL HCL [Concomitant]
  19. PROGRAF [Suspect]
     Indication: RENAL TRANSPLANT
     Dosage: UNK
     Dates: start: 20110709
  20. BACTRIM [Concomitant]
  21. CLONIDINE [Concomitant]

REACTIONS (3)
  - BRONCHITIS [None]
  - CONCOMITANT DISEASE PROGRESSION [None]
  - HYPERKALAEMIA [None]
